FAERS Safety Report 18246346 (Version 1)
Quarter: 2020Q3

REPORT INFORMATION
  Report Type: Report from Study
  Country: US (occurrence: US)
  Receive Date: 20200909
  Receipt Date: 20200909
  Transmission Date: 20201103
  Serious: Yes (Other)
  Sender: FDA-Public Use
  Company Number: US-AMGEN-USASL2020107435

PATIENT
  Age: 79 Year
  Sex: Male

DRUGS (2)
  1. REPATHA [Suspect]
     Active Substance: EVOLOCUMAB
     Indication: HYPERCHOLESTEROLAEMIA
     Dosage: 140 MILLIGRAM, Q2WK
     Route: 065
     Dates: start: 2018, end: 2019
  2. REPATHA [Suspect]
     Active Substance: EVOLOCUMAB
     Dosage: 140 MILLIGRAM, QMO
     Route: 065
     Dates: start: 2019

REACTIONS (9)
  - Off label use [Unknown]
  - Migraine [Unknown]
  - Diabetic neuropathy [Not Recovered/Not Resolved]
  - Large intestinal haemorrhage [Unknown]
  - Vertigo [Recovered/Resolved]
  - Cholecystectomy [Unknown]
  - Arthritis [Unknown]
  - Insomnia [Unknown]
  - Memory impairment [Unknown]

NARRATIVE: CASE EVENT DATE: 2019
